FAERS Safety Report 5610431-X (Version None)
Quarter: 2008Q1

REPORT INFORMATION
  Report Type: 
  Country: None (occurrence: None)
  Receive Date: 20080128
  Receipt Date: 20080115
  Transmission Date: 20080703
  Serious: Yes (Life-Threatening, Hospitalization, Other)
  Sender: FDA-Public Use
  Company Number: PAR_01805_2007

PATIENT
  Sex: Female
  Weight: 82.5547 kg

DRUGS (3)
  1. MEGESTROL ACETATE [Suspect]
     Indication: UTERINE LEIOMYOMA
     Dosage: 40 MG QD; ORAL
     Route: 048
     Dates: start: 20071112
  2. MEGESTROL ACETATE [Suspect]
     Indication: UTERINE LEIOMYOMA
     Dosage: 40 MG, QD, ORAL, 80 MG QD, ORAL
     Route: 048
     Dates: start: 20071001, end: 20071112
  3. MEGESTROL ACETATE [Suspect]
     Indication: UTERINE LEIOMYOMA
     Dosage: 40 MG, QD, ORAL, 80 MG QD, ORAL
     Route: 048
     Dates: start: 20070928

REACTIONS (3)
  - CARDIOMYOPATHY [None]
  - CHEST PAIN [None]
  - DYSPNOEA [None]
